FAERS Safety Report 7111937-7 (Version None)
Quarter: 2010Q4

REPORT INFORMATION
  Report Type: 
  Country: None (occurrence: None)
  Receive Date: 20101119
  Receipt Date: 20100113
  Transmission Date: 20110411
  Serious: Yes (Other)
  Sender: FDA-Public Use
  Company Number: US-ASTRAZENECA-2009UW11018

PATIENT
  Age: 17999 Day
  Sex: Male

DRUGS (18)
  1. SEROQUEL [Suspect]
     Indication: ANGER
     Dosage: 25 TO 300 MG
     Route: 048
     Dates: start: 20020530
  2. SEROQUEL [Suspect]
     Dosage: ONE HALF TABLET AT BEDTIME
     Route: 048
     Dates: start: 20020919
  3. NIFEDIPINE [Concomitant]
     Indication: BLOOD PRESSURE
     Route: 048
     Dates: start: 20020919
  4. GEMFIBROZIL [Concomitant]
     Indication: BLOOD TRIGLYCERIDES
     Route: 048
     Dates: start: 20020614
  5. GEMFIBROZIL [Concomitant]
     Route: 048
     Dates: start: 20020905
  6. ARIPIPRAZOLE [Concomitant]
     Dosage: ONE HALF TABLET AT BEDTIME
     Route: 048
     Dates: start: 20040101
  7. GUAIFENESIN [Concomitant]
     Indication: COUGH
     Dosage: 100MG/5ML TAKE 1 TEASPOONFUL BY MOUTH EVERY 6 HOURS AS NEEDED
     Route: 048
     Dates: start: 20020604
  8. LEVOFLOXACIN [Concomitant]
     Route: 048
     Dates: start: 20020614
  9. ACETAMINOPHEN [Concomitant]
     Dosage: TAKE 1 TO 2 TABLETS BY MOUTH TWO TIMES A DAY AS NEEDED
     Route: 048
     Dates: start: 20020614
  10. ASPIRIN [Concomitant]
     Route: 048
     Dates: start: 20020614
  11. CITALOPRAM HYDROBROMIDE [Concomitant]
     Route: 048
     Dates: start: 20020530
  12. ISOSORBIDE DINITRATE [Concomitant]
     Dosage: DISSOLVE ONE TABLET MOUTH THREE TIMES A DAY
     Route: 048
     Dates: start: 20020614
  13. PREDNISONE [Concomitant]
     Indication: DYSPNOEA
     Dosage: 10 TO 60 MG
     Route: 048
     Dates: start: 20020614
  14. AZITHROMYCIN [Concomitant]
     Dosage: 250 TO 500 MG
     Route: 048
     Dates: start: 20020604
  15. OXYCODONE HCL [Concomitant]
     Indication: PAIN
     Dosage: 10 TO 40 MG
     Route: 048
     Dates: start: 20020415
  16. ZIPRASIDONE HCL [Concomitant]
     Route: 048
     Dates: start: 20020515
  17. RABEPRAZOLE NA [Concomitant]
     Indication: GASTRIC PH DECREASED
     Route: 048
     Dates: start: 20020418
  18. WELLBUTRIN [Concomitant]
     Route: 048
     Dates: start: 20020411, end: 20100425

REACTIONS (2)
  - DIABETIC RETINOPATHY [None]
  - TYPE 2 DIABETES MELLITUS [None]
